FAERS Safety Report 5131113-7 (Version None)
Quarter: 2006Q4

REPORT INFORMATION
  Report Type: 
  Country: None (occurrence: None)
  Receive Date: 20061016
  Receipt Date: 20061005
  Transmission Date: 20070319
  Serious: Yes (Other)
  Sender: FDA-Public Use
  Company Number: 2006123088

PATIENT
  Age: 20 Year
  Sex: Female

DRUGS (1)
  1. ZOLOFT (SRETRALINE) [Suspect]
     Indication: DEPRESSION
     Dosage: 50 MG (1 IN 1 D), ORAL
     Route: 048
     Dates: start: 20060801, end: 20060901

REACTIONS (2)
  - COMPLETED SUICIDE [None]
  - LOSS OF CONSCIOUSNESS [None]
